FAERS Safety Report 9442035 (Version 1)
Quarter: 2013Q3

REPORT INFORMATION
  Report Type: Spontaneous
  Country: US (occurrence: US)
  Receive Date: 20130806
  Receipt Date: 20130806
  Transmission Date: 20140515
  Serious: Yes (Death, Other)
  Sender: FDA-Public Use
  Company Number: US-JNJFOC-20130717919

PATIENT
  Age: 39 Year
  Sex: Male

DRUGS (5)
  1. CLADRIBINE [Suspect]
     Indication: HODGKIN^S DISEASE
     Dosage: FOR 5 DAYS, - 10 TO - 6 DAYS
     Route: 042
  2. THIOTEPA [Suspect]
     Indication: HODGKIN^S DISEASE
     Dosage: FOR 3 DAYS, DAYS -5 TO -3
     Route: 042
  3. GRANULOCYTE-COLONY STIMULATING FACTOR [Concomitant]
     Route: 065
  4. CYCLOSPORINE [Concomitant]
     Indication: IMMUNOSUPPRESSION
     Dosage: LOADING DOSE; ON DAY -1
     Route: 042
  5. CYCLOSPORINE [Concomitant]
     Indication: IMMUNOSUPPRESSION
     Route: 042

REACTIONS (6)
  - Acute respiratory distress syndrome [Fatal]
  - Pulmonary toxicity [Unknown]
  - Lung infiltration [Unknown]
  - Nephropathy toxic [Unknown]
  - Tubulointerstitial nephritis [Unknown]
  - Off label use [Unknown]
